FAERS Safety Report 4269308-7 (Version None)
Quarter: 2004Q1

REPORT INFORMATION
  Report Type: 
  Country: None (occurrence: None)
  Receive Date: 20040109
  Receipt Date: 20040106
  Transmission Date: 20041129
  Serious: Yes (Congenital Anomaly)
  Sender: FDA-Public Use
  Company Number: THQ2003A01401

PATIENT
  Age: 1 Day
  Sex: Male

DRUGS (3)
  1. ZOTON (LANSOPRAZOLE) (CAPSULES) [Suspect]
     Dosage: 15 MG
     Route: 064
     Dates: end: 20030515
  2. BUSERELIN (BUSERELIN) [Concomitant]
  3. PUREGON (FOLLITROPIN BETA) [Concomitant]

REACTIONS (5)
  - CAESAREAN SECTION [None]
  - COMPLICATIONS OF MATERNAL EXPOSURE TO THERAPEUTIC DRUGS [None]
  - MATERNAL DRUGS AFFECTING FOETUS [None]
  - POLYDACTYLY [None]
  - PREGNANCY [None]
